FAERS Safety Report 22132751 (Version 3)
Quarter: 2023Q2

REPORT INFORMATION
  Report Type: Report from Study
  Country: US (occurrence: US)
  Receive Date: 20230323
  Receipt Date: 20230411
  Transmission Date: 20230722
  Serious: Yes (Other)
  Sender: FDA-Public Use
  Company Number: US-HORIZON THERAPEUTICS-HZN-2022-008916

PATIENT

DRUGS (13)
  1. TEPEZZA [Suspect]
     Active Substance: TEPROTUMUMAB-TRBW
     Indication: Toxic goitre
     Dosage: FIRST INFUSION :1200 MG, EVERY 3 WEEKS (OVER 60 MINUTES)
     Route: 042
     Dates: start: 20220911
  2. TEPEZZA [Suspect]
     Active Substance: TEPROTUMUMAB-TRBW
     Indication: Torticollis
     Dosage: 12.7ML EQUALS TO 605 MG, EVERY 3 WEEKS
     Route: 042
     Dates: start: 202210
  3. TEPEZZA [Suspect]
     Active Substance: TEPROTUMUMAB-TRBW
     Indication: Early onset primary dystonia
     Dosage: 1200 MG, EVERY 3 WEEKS
     Route: 042
     Dates: start: 202210
  4. TEPEZZA [Suspect]
     Active Substance: TEPROTUMUMAB-TRBW
     Indication: Endocrine ophthalmopathy
     Dosage: 1200 MG, EVERY 3 WEEKS,
     Route: 042
     Dates: start: 20221109
  5. TEPEZZA [Suspect]
     Active Substance: TEPROTUMUMAB-TRBW
     Dosage: 25.2 ML = 1200 MG. WITHDRAW 25.2 ML SALINE FROM 100 ML BAG, ADD TEPEZZA TO BAG. INFUSE 1ST MAINTENAN
     Route: 042
  6. TEPEZZA [Suspect]
     Active Substance: TEPROTUMUMAB-TRBW
     Dosage: 1200 MG, EVERY 3 WEEKS
     Route: 042
  7. CYCLOBENZAPRINE HYDROCHLORIDE [Concomitant]
     Active Substance: CYCLOBENZAPRINE HYDROCHLORIDE
     Indication: Product used for unknown indication
     Dosage: 10 MG
     Route: 065
  8. METHIMAZOLE [Concomitant]
     Active Substance: METHIMAZOLE
     Indication: Product used for unknown indication
     Dosage: 5 MG
     Route: 065
  9. SODIUM CHLORIDE [Concomitant]
     Active Substance: SODIUM CHLORIDE
     Route: 065
  10. SODIUM CHLORIDE [Concomitant]
     Active Substance: SODIUM CHLORIDE
     Route: 065
  11. STERILE WATER [Concomitant]
     Active Substance: WATER
     Route: 065
  12. LUBRICANT [Concomitant]
     Active Substance: UNSPECIFIED INGREDIENT
     Dosage: 0.3% TO 0.4 %, DROPS  FOR EYE
  13. ADVIL [Concomitant]
     Active Substance: IBUPROFEN
     Dosage: 200 MG
     Route: 065

REACTIONS (39)
  - Dystonia [Unknown]
  - Pruritus [Unknown]
  - Tremor [Unknown]
  - Skin exfoliation [Unknown]
  - Constipation [Recovering/Resolving]
  - Restless legs syndrome [Unknown]
  - Gait disturbance [Unknown]
  - Photosensitivity reaction [Unknown]
  - Incontinence [Unknown]
  - Ocular discomfort [Unknown]
  - Eye swelling [Unknown]
  - Eye pain [Recovering/Resolving]
  - Decreased appetite [Unknown]
  - Urinary tract infection [Unknown]
  - Urine abnormality [Unknown]
  - Hyperacusis [Unknown]
  - Diarrhoea [Unknown]
  - Muscle spasms [Unknown]
  - Fatigue [Not Recovered/Not Resolved]
  - Dry skin [Unknown]
  - Headache [Not Recovered/Not Resolved]
  - Taste disorder [Unknown]
  - Weight decreased [Unknown]
  - Nausea [Recovering/Resolving]
  - Onychoclasis [Unknown]
  - Nail disorder [Unknown]
  - Pain in extremity [Unknown]
  - Insomnia [Unknown]
  - Myalgia [Not Recovered/Not Resolved]
  - Chest pain [Unknown]
  - Chest discomfort [Unknown]
  - Palpitations [Unknown]
  - Stress [Unknown]
  - Pain [Not Recovered/Not Resolved]
  - Arthralgia [Not Recovered/Not Resolved]
  - Condition aggravated [Unknown]
  - Vision blurred [Unknown]
  - Emotional disorder [Unknown]
  - Dry eye [Unknown]

NARRATIVE: CASE EVENT DATE: 20220101
